FAERS Safety Report 9857982 (Version 1)
Quarter: 2014Q1

REPORT INFORMATION
  Report Type: Report from Study
  Country: JP (occurrence: JP)
  Receive Date: 20140131
  Receipt Date: 20140131
  Transmission Date: 20141002
  Serious: Yes (Life-Threatening, Hospitalization, Other)
  Sender: FDA-Public Use
  Company Number: JP-AMGEN-JPNCT2014006827

PATIENT
  Age: 82 Year
  Sex: Male
  Weight: 60 kg

DRUGS (16)
  1. DARBEPOETIN ALFA [Suspect]
     Indication: NEPHROGENIC ANAEMIA
     Dosage: 30 MUG, Q3WK
     Route: 058
     Dates: start: 20101225
  2. BAYASPIRIN [Concomitant]
     Dosage: UNK
     Route: 048
  3. ARTIST [Concomitant]
     Dosage: UNK
     Route: 048
  4. BLOPRESS [Concomitant]
     Dosage: UNK
     Route: 048
  5. LASIX                              /00032601/ [Concomitant]
     Dosage: UNK
     Route: 048
  6. NORVASC [Concomitant]
     Dosage: UNK
     Route: 048
  7. ZYLORIC [Concomitant]
     Dosage: UNK
     Route: 048
  8. CILOSTAZOL [Concomitant]
     Dosage: UNK
     Route: 048
  9. SUMILU [Concomitant]
     Dosage: UNK
     Route: 062
  10. KAYEXALATE [Concomitant]
     Dosage: UNK
     Route: 048
  11. ARGAMATE [Concomitant]
     Dosage: UNK
     Route: 048
  12. FEBURIC [Concomitant]
     Dosage: UNK
     Route: 048
  13. KREMEZIN [Concomitant]
     Indication: NEPHROSCLEROSIS
     Dosage: UNK
     Route: 048
  14. AZILVA [Concomitant]
     Dosage: UNK
     Route: 048
  15. SOSEGON [Concomitant]
     Indication: BRONCHOSCOPY
     Dosage: UNK
     Route: 065
  16. ATROPINE SULFATE [Concomitant]
     Indication: BRONCHOSCOPY
     Dosage: UNK
     Route: 065

REACTIONS (12)
  - Small cell lung cancer [Not Recovered/Not Resolved]
  - Decreased appetite [Recovered/Resolved]
  - Pneumonia [Recovered/Resolved]
  - Hepatic function abnormal [Recovered/Resolved]
  - Hypokalaemia [Recovered/Resolved]
  - Cough [Recovered/Resolved]
  - Malaise [Recovered/Resolved]
  - Decreased appetite [Recovered/Resolved]
  - Gastroduodenal ulcer [Not Recovered/Not Resolved]
  - Tendonitis [Unknown]
  - Rhinitis [Recovered/Resolved]
  - Bronchial haemorrhage [Recovered/Resolved]
